FAERS Safety Report 12242742 (Version 1)
Quarter: 2016Q2

REPORT INFORMATION
  Report Type: Spontaneous
  Country: US (occurrence: US)
  Receive Date: 20160406
  Receipt Date: 20160406
  Transmission Date: 20160815
  Serious: Yes (Other)
  Sender: FDA-Public Use
  Company Number: US-MDT-ADR-2016-00507

PATIENT
  Age: 56 Year
  Sex: Female

DRUGS (1)
  1. COMPOUNDED BACLOFEN [Suspect]
     Active Substance: BACLOFEN
     Dosage: 20 MCG/DAY
     Route: 037

REACTIONS (6)
  - Adverse drug reaction [Recovered/Resolved]
  - Screaming [Recovered/Resolved]
  - Sensory disturbance [None]
  - Medical device site pain [Recovered/Resolved]
  - Emotional distress [Recovered/Resolved]
  - Paraesthesia oral [Recovered/Resolved]
